FAERS Safety Report 25045874 (Version 1)
Quarter: 2025Q1

REPORT INFORMATION
  Report Type: Spontaneous
  Country: US (occurrence: None)
  Receive Date: 20250305
  Receipt Date: 20250305
  Transmission Date: 20250408
  Serious: Yes (Life-Threatening, Hospitalization)
  Sender: FDA-CTU
  Company Number: None

PATIENT
  Age: 66 Year
  Sex: Female

DRUGS (1)
  1. CEFTRIAXONE SODIUM [Suspect]
     Active Substance: CEFTRIAXONE SODIUM
     Dosage: 2 G GRAM(S) DAILY INTRAVENOUS DRIP
     Route: 041
     Dates: start: 20241120, end: 20241120

REACTIONS (6)
  - Anxiety [None]
  - Cough [None]
  - Oxygen saturation decreased [None]
  - Erythema [None]
  - Drug hypersensitivity [None]
  - General physical health deterioration [None]

NARRATIVE: CASE EVENT DATE: 20241120
